FAERS Safety Report 19449924 (Version 1)
Quarter: 2021Q2

REPORT INFORMATION
  Report Type: Spontaneous
  Country: US (occurrence: US)
  Receive Date: 20210622
  Receipt Date: 20210622
  Transmission Date: 20210717
  Serious: Yes (Other)
  Sender: FDA-Public Use
  Company Number: US-FRESENIUS KABI-FK202106304

PATIENT
  Age: 30 Year
  Sex: Male

DRUGS (13)
  1. METHOTREXATE (MANUFACTURER UNKNOWN) [Suspect]
     Active Substance: METHOTREXATE
     Dosage: 1000 MG/ M2/DOSE DAY 8 WITH LEUCOVORIN RESCUE; CONSOLIDATION CHEMOTHERAPY PER ALL R3 PROTOCOL
     Route: 065
  2. METHOTREXATE (MANUFACTURER UNKNOWN) [Suspect]
     Active Substance: METHOTREXATE
     Indication: B PRECURSOR TYPE ACUTE LEUKAEMIA
     Dosage: DAY 1 AND 8; REINDUCTION CHEMOTHERAPY PER ALL R3 PROTOCOL
     Route: 037
  3. PEGASPARGASE [Suspect]
     Active Substance: PEGASPARGASE
     Indication: B PRECURSOR TYPE ACUTE LEUKAEMIA
     Dosage: 2500U/M2; DAY 3 AND 18; REINDUCTION CHEMOTHERAPY PER ALL R3 PROTOCOL
     Route: 065
  4. METHOTREXATE (MANUFACTURER UNKNOWN) [Suspect]
     Active Substance: METHOTREXATE
     Dosage: DAY 1; CONSOLIDATION CHEMOTHERAPY PER ALL R3 PROTOCOL
     Route: 037
  5. MITOXANTRONE [Suspect]
     Active Substance: MITOXANTRONE HYDROCHLORIDE
     Indication: B PRECURSOR TYPE ACUTE LEUKAEMIA
     Dosage: 10MG/M2/DOSE; DAY 1?2; REINDUCTION CHEMOTHERAPY PER ALL R3 PROTOCOL
     Route: 065
  6. VINCRISTINE [Suspect]
     Active Substance: VINCRISTINE
     Indication: B PRECURSOR TYPE ACUTE LEUKAEMIA
     Dosage: 1.5MG/M2/ DOSE FROM DAY 3, THEN WEEKLY; REINDUCTION CHEMOTHERAPY PER ALL R3 PROTOCOL
     Route: 065
  7. VINCRISTINE [Suspect]
     Active Substance: VINCRISTINE
     Dosage: 1.5 NG/ M2/DOSE; DAY 3; CONSOLIDATION CHEMOTHERAPY PER ALL R3 PROTOCOL
     Route: 065
  8. ETOPOSIDE (MANUFACTURER UNKNOWN) [Suspect]
     Active Substance: ETOPOSIDE
     Indication: B PRECURSOR TYPE ACUTE LEUKAEMIA
     Dosage: 100MG/M2/DOSE; DAY 15?19; CONSOLIDATION CHEMOTHERAPY PER ALL R3 PROTOCOL
     Route: 065
  9. DEXAMETHASONE INJECTION (MANUFACTURER UNKNOWN) [Suspect]
     Active Substance: DEXAMETHASONE
     Dosage: 6MG/M2/DAY; DAY 1?5; CONSOLIDATION CHEMOTHERAPY PER ALL R3 PROTOCOL
     Route: 065
  10. LEUCOVORIN CALCIUM (MANUFACTURER UNKNOWN) [Suspect]
     Active Substance: LEUCOVORIN CALCIUM
     Indication: B PRECURSOR TYPE ACUTE LEUKAEMIA
     Dosage: CONSOLIDATION CHEMOTHERAPY PER ALL R3 PROTOCOL
     Route: 065
  11. PEGASPARGASE [Suspect]
     Active Substance: PEGASPARGASE
     Dosage: 2500 U/M2/DOSE DAY 9; CONSOLIDATION CHEMOTHERAPY PER ALL R3 PROTOCOL
     Route: 065
  12. CYCLOPHOSPHAMIDE. [Suspect]
     Active Substance: CYCLOPHOSPHAMIDE
     Indication: B PRECURSOR TYPE ACUTE LEUKAEMIA
     Dosage: 440 MG/M2/DOSE DAY 15?19; CONSOLIDATION CHEMOTHERAPY PER ALL R3 PROTOCOL
     Route: 065
  13. DEXAMETHASONE INJECTION (MANUFACTURER UNKNOWN) [Suspect]
     Active Substance: DEXAMETHASONE
     Indication: B PRECURSOR TYPE ACUTE LEUKAEMIA
     Dosage: 20MG/M2/DAY; DAY 1?5 AND 15?19; REINDUCTION CHEMOTHERAPY PER ALL R3 PROTOCOL
     Route: 065

REACTIONS (3)
  - Pneumonia necrotising [Unknown]
  - Pleural effusion [Unknown]
  - Sepsis [Unknown]
